FAERS Safety Report 6923944-5 (Version None)
Quarter: 2010Q3

REPORT INFORMATION
  Report Type: 
  Country: None (occurrence: None)
  Receive Date: 20100813
  Receipt Date: 20100805
  Transmission Date: 20110219
  Serious: Yes (Other)
  Sender: FDA-Public Use
  Company Number: BR-ELI_LILLY_AND_COMPANY-BR201008001793

PATIENT
  Sex: Female

DRUGS (3)
  1. FORTEO [Suspect]
     Indication: OSTEOPOROSIS
     Dosage: UNK, DAILY (1/D)
     Route: 065
     Dates: start: 20091201
  2. SODIUM BICARBONATE [Concomitant]
     Indication: MINERAL SUPPLEMENTATION
     Dosage: 500 MG, 2/D
     Route: 048
  3. POTASSIUM CITRATE [Concomitant]
     Indication: MINERAL SUPPLEMENTATION
     Dosage: 0.5 MG, 3/D
     Route: 048

REACTIONS (4)
  - MENORRHAGIA [None]
  - OFF LABEL USE [None]
  - OSTEOMALACIA [None]
  - RENAL TUBULAR ACIDOSIS [None]
